FAERS Safety Report 17551910 (Version 1)
Quarter: 2020Q1

REPORT INFORMATION
  Report Type: Spontaneous
  Country: IT (occurrence: IT)
  Receive Date: 20200317
  Receipt Date: 20200317
  Transmission Date: 20200409
  Serious: Yes (Death, Hospitalization)
  Sender: FDA-Public Use
  Company Number: NVSC2020IT067627

PATIENT
  Age: 38 Year
  Sex: Female

DRUGS (5)
  1. PREDNISONE. [Suspect]
     Active Substance: PREDNISONE
     Indication: PRODUCT USED FOR UNKNOWN INDICATION
     Dosage: 50 MG, QD, FOR 14 DAYS
     Route: 065
  2. ACYCLOVIR. [Concomitant]
     Active Substance: ACYCLOVIR
     Indication: PROPHYLAXIS
     Dosage: 200 MG, BID, FOR 30 DAYS
     Route: 065
  3. PREDNISONE. [Suspect]
     Active Substance: PREDNISONE
     Dosage: TAPERRING DOSE
     Route: 065
  4. METHYLPREDNISOLONE. [Suspect]
     Active Substance: METHYLPREDNISOLONE
     Indication: INFUSION RELATED REACTION
     Dosage: 1 G, FOR 5 CONSECUTIVE DAYS
     Route: 042
  5. CETIRIZINE [Concomitant]
     Active Substance: CETIRIZINE HYDROCHLORIDE
     Indication: INFUSION RELATED REACTION
     Dosage: 10 MG, FOR 5 CONSECUTIVE DAYS
     Route: 048

REACTIONS (11)
  - Bronchopulmonary aspergillosis [Fatal]
  - Asthenia [Fatal]
  - Diarrhoea [Fatal]
  - Abdominal pain [Fatal]
  - Dyspnoea [Fatal]
  - Vomiting [Fatal]
  - Cardiac arrest [Fatal]
  - Pyrexia [Fatal]
  - Hypoxia [Fatal]
  - Product use in unapproved indication [Unknown]
  - Cough [Fatal]
